FAERS Safety Report 9899247 (Version 2)
Quarter: 2014Q1

REPORT INFORMATION
  Report Type: Spontaneous
  Country: US (occurrence: US)
  Receive Date: 20140214
  Receipt Date: 20140214
  Transmission Date: 20141002
  Serious: No
  Sender: FDA-Public Use
  Company Number: US-GILEAD-2011-0046866

PATIENT
  Age: 38 Year
  Sex: Female

DRUGS (2)
  1. LETAIRIS [Suspect]
     Indication: PRODUCT USED FOR UNKNOWN INDICATION
     Dosage: 5 MG,
     Route: 048
     Dates: start: 20100901
  2. LETAIRIS [Suspect]
     Dosage: 10 MG,
     Route: 048

REACTIONS (5)
  - Abdominal distension [Unknown]
  - Local swelling [Unknown]
  - Gastric infection [Unknown]
  - Vomiting [Unknown]
  - Abdominal pain upper [Unknown]
